FAERS Safety Report 11875351 (Version 1)
Quarter: 2015Q4

REPORT INFORMATION
  Report Type: Spontaneous
  Country: US (occurrence: US)
  Receive Date: 20151229
  Receipt Date: 20151229
  Transmission Date: 20160305
  Serious: No
  Sender: FDA-Public Use
  Company Number: US-PFIZER INC-2015427029

PATIENT
  Age: 68 Year
  Sex: Female
  Weight: 53.7 kg

DRUGS (1)
  1. ALPRAZOLAM. [Suspect]
     Active Substance: ALPRAZOLAM
     Dosage: UNK, 6 TIMES A DAY
     Route: 048

REACTIONS (4)
  - Malaise [Unknown]
  - Drug intolerance [Unknown]
  - Urticaria [Not Recovered/Not Resolved]
  - Rash [Unknown]
